FAERS Safety Report 8608186 (Version 2)
Quarter: 2013Q3

REPORT INFORMATION
  Report Type: Spontaneous
  Country: US (occurrence: US)
  Receive Date: 20120611
  Receipt Date: 20130704
  Transmission Date: 20140515
  Serious: Yes (Hospitalization, Other)
  Sender: FDA-Public Use
  Company Number: US-ASTRAZENECA-2012SE35344

PATIENT
  Age: 67 Year
  Sex: Female
  Weight: 104.3 kg

DRUGS (6)
  1. NEXIUM [Suspect]
     Route: 048
  2. ACTOS [Concomitant]
     Dates: start: 200507
  3. AMBIEN [Concomitant]
     Dates: start: 200507
  4. FUROSEMIDE [Concomitant]
     Dates: start: 200507
  5. PREVACID [Concomitant]
     Dates: start: 200507
  6. PROTONIX [Concomitant]
     Dates: start: 200101

REACTIONS (15)
  - Cerebrovascular accident [Unknown]
  - Myocardial infarction [Unknown]
  - Ankle fracture [Unknown]
  - Type 2 diabetes mellitus [Unknown]
  - Fall [Unknown]
  - Cardiac failure congestive [Unknown]
  - Coronary artery disease [Unknown]
  - Peripheral vascular disorder [Unknown]
  - Renal failure [Unknown]
  - Depression [Unknown]
  - Osteoporosis [Unknown]
  - Cardiovascular disorder [Unknown]
  - Hyperparathyroidism [Unknown]
  - Arthritis [Unknown]
  - Angina pectoris [Unknown]
